FAERS Safety Report 14034237 (Version 1)
Quarter: 2017Q4

REPORT INFORMATION
  Report Type: Spontaneous
  Country: US (occurrence: US)
  Receive Date: 20171003
  Receipt Date: 20171003
  Transmission Date: 20180321
  Serious: No
  Sender: FDA-Public Use
  Company Number: US-TEVA-797173ACC

PATIENT
  Age: 47 Year
  Sex: Male

DRUGS (1)
  1. CLONAZEPAM. [Suspect]
     Active Substance: CLONAZEPAM
     Indication: ANXIETY
     Dates: start: 2015

REACTIONS (6)
  - Amnesia [Unknown]
  - Disturbance in attention [Unknown]
  - Drug prescribing error [Unknown]
  - Weight decreased [Unknown]
  - Lethargy [Unknown]
  - Therapeutic response unexpected [Unknown]
